FAERS Safety Report 13895913 (Version 1)
Quarter: 2017Q3

REPORT INFORMATION
  Report Type: Report from Study
  Country: US (occurrence: US)
  Receive Date: 20170823
  Receipt Date: 20170823
  Transmission Date: 20171127
  Serious: Yes (Death)
  Sender: FDA-Public Use
  Company Number: US-ASTRAZENECA-2017SE84955

PATIENT
  Age: 17552 Day
  Sex: Female

DRUGS (1)
  1. SYMBICORT [Suspect]
     Active Substance: BUDESONIDE\FORMOTEROL FUMARATE DIHYDRATE
     Indication: PRODUCT USED FOR UNKNOWN INDICATION
     Dosage: STRENGTH, START DATE, DOSE, FREQUENCY, LOT NUMBER AND ROUTE ARE ALL UNKNOWN UNKNOWN
     Route: 065

REACTIONS (3)
  - Death [Fatal]
  - Adverse event [Fatal]
  - Weight increased [Fatal]

NARRATIVE: CASE EVENT DATE: 20170812
